FAERS Safety Report 11835162 (Version 6)
Quarter: 2016Q2

REPORT INFORMATION
  Report Type: Spontaneous
  Country: CN (occurrence: CN)
  Receive Date: 20151215
  Receipt Date: 20160412
  Transmission Date: 20160815
  Serious: No
  Sender: FDA-Public Use
  Company Number: CN-009507513-1510CHN013056

PATIENT
  Age: 72 Year
  Sex: Male
  Weight: 55 kg

DRUGS (28)
  1. EMEND [Suspect]
     Active Substance: APREPITANT
     Dosage: 80 MG, DAY 3
     Route: 048
     Dates: start: 20150901, end: 20150901
  2. POTASSIUM PHOSPHATE, DIBASIC [Concomitant]
     Active Substance: POTASSIUM PHOSPHATE, DIBASIC
     Dosage: 4 ML/CC, QD
     Route: 041
     Dates: start: 20150828, end: 20150829
  3. POTASSIUM CHLORIDE. [Concomitant]
     Active Substance: POTASSIUM CHLORIDE
     Dosage: 10 ML/CC, QD
     Route: 041
     Dates: start: 20150828, end: 20150829
  4. VITAMINS (UNSPECIFIED) [Concomitant]
     Active Substance: VITAMINS
     Indication: VITAMIN SUPPLEMENTATION
     Dosage: 2 ZHI; STRENGTH:2 ZHI, QD
     Route: 041
     Dates: start: 20150830, end: 20150905
  5. AMIFOSTINE. [Concomitant]
     Active Substance: AMIFOSTINE
     Indication: PROPHYLAXIS
     Dosage: 0.8 G, QD
     Route: 041
     Dates: start: 20150830, end: 20150901
  6. LENTINAN [Concomitant]
     Active Substance: LENTINAN
     Dosage: 1 MG, QD
     Route: 041
     Dates: start: 20150828, end: 20150829
  7. OXYCODONE HYDROCHLORIDE. [Concomitant]
     Active Substance: OXYCODONE HYDROCHLORIDE
     Indication: ANALGESIC THERAPY
     Dosage: 10 MG, BID
     Route: 048
     Dates: start: 20150830, end: 20150905
  8. AMINO ACIDS (UNSPECIFIED) [Concomitant]
     Active Substance: AMINO ACIDS
     Indication: NUTRITIONAL SUPPLEMENTATION
     Dosage: 500 ML/CC; QD
     Route: 041
     Dates: start: 20150830, end: 20150905
  9. AMINO ACIDS (UNSPECIFIED) [Concomitant]
     Active Substance: AMINO ACIDS
     Dosage: 500 ML/CC, QD
     Route: 041
     Dates: start: 20150828, end: 20150829
  10. DEXAMETHASONE. [Concomitant]
     Active Substance: DEXAMETHASONE
     Indication: PROPHYLAXIS OF NAUSEA AND VOMITING
     Dosage: 10 MG, QD
     Route: 041
     Dates: start: 20150830, end: 20150901
  11. FLUOROURACIL INJECTION [Concomitant]
     Indication: CHEMOTHERAPY
     Dosage: 4 G,DCF, TREATMENT CYCLE 1
     Route: 041
     Dates: start: 20150830, end: 20150830
  12. POTASSIUM PHOSPHATE, DIBASIC [Concomitant]
     Active Substance: POTASSIUM PHOSPHATE, DIBASIC
     Indication: PARENTERAL NUTRITION
     Dosage: 4 ML/CC, QD
     Route: 041
     Dates: start: 20150830, end: 20150905
  13. EMEND [Suspect]
     Active Substance: APREPITANT
     Dosage: 80 MG, DAY 2
     Route: 048
     Dates: start: 20150831, end: 20150831
  14. VITAMINS (UNSPECIFIED) [Concomitant]
     Active Substance: VITAMINS
     Dosage: 2 ZHI; STRENGTH:2 ZHI, QD
     Route: 041
     Dates: start: 20150828, end: 20150829
  15. METOCLOPRAMIDE HYDROCHLORIDE. [Concomitant]
     Active Substance: METOCLOPRAMIDE HYDROCHLORIDE
     Indication: PROPHYLAXIS OF NAUSEA AND VOMITING
     Dosage: 20 MG, ONCE
     Route: 030
     Dates: start: 20150830, end: 20150830
  16. POTASSIUM CHLORIDE. [Concomitant]
     Active Substance: POTASSIUM CHLORIDE
     Indication: MINERAL SUPPLEMENTATION
     Dosage: 10 ML/CC, QD
     Route: 041
     Dates: start: 20150830, end: 20150905
  17. PALONOSETRON HYDROCHLORIDE. [Concomitant]
     Active Substance: PALONOSETRON HYDROCHLORIDE
     Indication: PROPHYLAXIS OF NAUSEA AND VOMITING
     Dosage: 0.25 MG,STRENGTH:0.25MG, QD
     Route: 041
     Dates: start: 20150830, end: 20150902
  18. SODIUM DEOXYRIBONUCLEATE [Concomitant]
     Indication: PROPHYLAXIS
     Dosage: 150 ML/CC, QD
     Route: 041
     Dates: start: 20150830, end: 20150905
  19. EMEND [Suspect]
     Active Substance: APREPITANT
     Indication: PROPHYLAXIS OF NAUSEA AND VOMITING
     Dosage: 125 MG, DAY 1
     Route: 048
     Dates: start: 20150830, end: 20150830
  20. CISPLATIN. [Concomitant]
     Active Substance: CISPLATIN
     Indication: CHEMOTHERAPY
     Dosage: 40 MG, DCF TREATMENT CYCLE 1
     Route: 041
     Dates: start: 20150830, end: 20150901
  21. OMEPRAZOLE. [Concomitant]
     Active Substance: OMEPRAZOLE
     Indication: PROPHYLAXIS
     Dosage: 40 MG,QD
     Route: 041
     Dates: start: 20150830, end: 20150905
  22. MORPHINE [Concomitant]
     Active Substance: MORPHINE
     Indication: ANALGESIC THERAPY
     Dosage: 5 MG, ST
     Route: 048
     Dates: start: 20150830, end: 20150830
  23. DEXAMETHASONE. [Concomitant]
     Active Substance: DEXAMETHASONE
     Indication: INFLAMMATION
     Dosage: 5 MG, ONCE
     Route: 041
     Dates: start: 20150830, end: 20150830
  24. DOCETAXEL. [Concomitant]
     Active Substance: DOCETAXEL
     Indication: CHEMOTHERAPY
     Dosage: 120 MG DCF, TREATMENT CYCLE 1
     Route: 041
     Dates: start: 20150830, end: 20150830
  25. LENTINAN [Concomitant]
     Active Substance: LENTINAN
     Indication: IMMUNISATION
     Dosage: 1 MG, QD
     Route: 041
     Dates: start: 20150830, end: 20150905
  26. DIISOPROPYLAMINE DICHLOROACETATE [Concomitant]
     Indication: PROPHYLAXIS
     Dosage: 160 MG, QD
     Route: 041
     Dates: start: 20150830, end: 20150905
  27. FAT (UNSPECIFIED) [Concomitant]
     Indication: PARENTERAL NUTRITION
     Dosage: 50 G, QD
     Route: 041
     Dates: start: 20150828, end: 20150830
  28. TROPISETRON [Concomitant]
     Active Substance: TROPISETRON
     Indication: PROPHYLAXIS
     Dosage: 6 MG, QD
     Route: 041
     Dates: start: 20150902, end: 20150905

REACTIONS (2)
  - Platelet count decreased [Not Recovered/Not Resolved]
  - Constipation [Recovering/Resolving]

NARRATIVE: CASE EVENT DATE: 20150903
